FAERS Safety Report 6919113-5 (Version None)
Quarter: 2010Q3

REPORT INFORMATION
  Report Type: 
  Country: None (occurrence: None)
  Receive Date: 20100811
  Receipt Date: 20100804
  Transmission Date: 20110219
  Serious: Yes (Other)
  Sender: FDA-Public Use
  Company Number: US-ROCHE-701324

PATIENT
  Sex: Female
  Weight: 45.4 kg

DRUGS (1)
  1. CAPECITABINE [Suspect]
     Indication: COLORECTAL CANCER
     Route: 048
     Dates: start: 20090429, end: 20090501

REACTIONS (4)
  - ABASIA [None]
  - DIARRHOEA [None]
  - PAIN IN EXTREMITY [None]
  - RESPIRATORY TRACT INFECTION [None]
